FAERS Safety Report 15099328 (Version 3)
Quarter: 2018Q3

REPORT INFORMATION
  Report Type: Spontaneous
  Country: US (occurrence: US)
  Receive Date: 20180702
  Receipt Date: 20180803
  Transmission Date: 20181010
  Serious: No
  Sender: FDA-Public Use
  Company Number: US-VERTEX PHARMACEUTICALS-2018-003325

PATIENT
  Age: 6 Year
  Sex: Female

DRUGS (8)
  1. CHOLECALCIFEROL [Concomitant]
     Active Substance: CHOLECALCIFEROL
     Dosage: 1 CAPSULE (1000 UNITS), QD
     Route: 048
  2. IPRATROPIUM [Concomitant]
     Active Substance: IPRATROPIUM
     Dosage: 1?2 SPRAYS IN EACH NOSTRIL 3?4 TIMES A DAY
  3. ORKAMBI [Suspect]
     Active Substance: IVACAFTOR\LUMACAFTOR
     Indication: CYSTIC FIBROSIS
     Dosage: 2 TABLETS (100/125 MG), BID
     Route: 048
     Dates: start: 20180411
  4. PANCRELIPASE. [Concomitant]
     Active Substance: PANCRELIPASE
     Dosage: 4?5 CAP. WITH MEALS AND 3 CAP. WITH SNACKS
     Route: 048
  5. FEXOFENADINE [Concomitant]
     Active Substance: FEXOFENADINE\FEXOFENADINE HYDROCHLORIDE
     Dosage: 5 MILLILITER, BID
     Route: 048
  6. SODIUM CHLORIDE. [Concomitant]
     Active Substance: SODIUM CHLORIDE
     Indication: COUGH
     Dosage: 4 MILLILITER, BID, INCREASE TO 4 TIMES DAILY WITH INCREASED COUGH
     Route: 055
  7. LANSOPRAZOLE. [Concomitant]
     Active Substance: LANSOPRAZOLE
     Dosage: DISSOLVE 1 TABLET IN WATER, 1/2 TO 1 HOUR BEFORE FOOD, BID
     Route: 048
  8. PROAIR HFA [Concomitant]
     Active Substance: ALBUTEROL SULFATE
     Indication: WHEEZING
     Dosage: 2 PUFFS, EVERY 4 HOURS AS NEEDED FOR WHEEZING
     Route: 055

REACTIONS (2)
  - Headache [Unknown]
  - Infective pulmonary exacerbation of cystic fibrosis [Recovered/Resolved]

NARRATIVE: CASE EVENT DATE: 201805
